FAERS Safety Report 9933661 (Version 2)
Quarter: 2014Q1

REPORT INFORMATION
  Report Type: Spontaneous
  Country: US (occurrence: US)
  Receive Date: 20140228
  Receipt Date: 20140228
  Transmission Date: 20141002
  Serious: No
  Sender: FDA-Public Use
  Company Number: US-ABBVIE-13P-163-1182872-00

PATIENT
  Age: 64 Year
  Sex: Male
  Weight: 102.15 kg

DRUGS (4)
  1. ANDROGEL [Suspect]
     Indication: BLOOD TESTOSTERONE DECREASED
     Dosage: 2 PUMPS
     Route: 061
     Dates: start: 201206
  2. ANTIHYPERTENSIVES [Concomitant]
     Indication: HYPERTENSION
  3. UNKNOWN HYPOTHYROID MEDICATION [Concomitant]
     Indication: HYPOTHYROIDISM
  4. ANTIDEPRESSANTS [Concomitant]
     Indication: DEPRESSION

REACTIONS (3)
  - Application site rash [Not Recovered/Not Resolved]
  - Application site acne [Not Recovered/Not Resolved]
  - Pruritus [Not Recovered/Not Resolved]
